FAERS Safety Report 17245292 (Version 3)
Quarter: 2020Q1

REPORT INFORMATION
  Report Type: Report from Study
  Country: GB (occurrence: GB)
  Receive Date: 20200108
  Receipt Date: 20200313
  Transmission Date: 20200409
  Serious: Yes (Other)
  Sender: FDA-Public Use
  Company Number: GB-BAUSCH-BL-2020-000273

PATIENT
  Age: 70 Year
  Sex: Male

DRUGS (6)
  1. VITAMIN D [Concomitant]
     Active Substance: VITAMIN D NOS
     Indication: PRODUCT USED FOR UNKNOWN INDICATION
  2. AMLODIPINE [Concomitant]
     Active Substance: AMLODIPINE BESYLATE
     Indication: HYPERTENSION
  3. VITAMIN B12 [Concomitant]
     Active Substance: CYANOCOBALAMIN
     Indication: PRODUCT USED FOR UNKNOWN INDICATION
  4. KYNTHEUM [Suspect]
     Active Substance: BRODALUMAB
     Indication: PSORIASIS
     Dosage: WEEKS 0,1,2 THEN AT TWO WEEKS
     Route: 058
     Dates: start: 20191128
  5. EMPAGLIFLOZIN [Concomitant]
     Active Substance: EMPAGLIFLOZIN
     Indication: DIABETES MELLITUS
  6. DOXAZOSIN MESILATE [Concomitant]
     Active Substance: DOXAZOSIN MESYLATE
     Indication: HYPERTENSION

REACTIONS (9)
  - Flatulence [Unknown]
  - Mucous stools [Unknown]
  - Cellulitis [Recovered/Resolved]
  - Feeling abnormal [Recovered/Resolved]
  - Product administration interrupted [Recovered/Resolved]
  - Lower respiratory tract infection [Recovered/Resolved]
  - Psoriasis [Unknown]
  - Malaise [Unknown]
  - Drug ineffective [Unknown]

NARRATIVE: CASE EVENT DATE: 201912
